FAERS Safety Report 4815740-X (Version None)
Quarter: 2005Q4

REPORT INFORMATION
  Report Type: 
  Country: None (occurrence: None)
  Receive Date: 20051027
  Receipt Date: 20051018
  Transmission Date: 20060501
  Serious: Yes (Other)
  Sender: FDA-Public Use
  Company Number: 2005-10-0969

PATIENT
  Age: 56 Year
  Sex: Male

DRUGS (2)
  1. PEG-INTERFERON INJECTABLE [Suspect]
     Indication: HEPATITIS C
     Dosage: 180 MCG QW SUBCUTANEOUS
     Route: 058
  2. RIBAVIRIN [Suspect]
     Indication: HEPATITIS C
     Dosage: 800 MG QD

REACTIONS (6)
  - CRYOGLOBULINAEMIA [None]
  - DEMYELINATING POLYNEUROPATHY [None]
  - NECROSIS [None]
  - PERIPHERAL SENSORY NEUROPATHY [None]
  - POLYARTERITIS NODOSA [None]
  - VASCULITIS [None]
